FAERS Safety Report 17308544 (Version 1)
Quarter: 2020Q1

REPORT INFORMATION
  Report Type: Spontaneous
  Country: US (occurrence: US)
  Receive Date: 20200123
  Receipt Date: 20200123
  Transmission Date: 20200409
  Serious: No
  Sender: FDA-Public Use
  Company Number: US-SA-2020SA018506

PATIENT
  Sex: Male

DRUGS (1)
  1. AMARYL [Suspect]
     Active Substance: GLIMEPIRIDE
     Route: 065

REACTIONS (2)
  - Blood glucose increased [Unknown]
  - Hepatic enzyme increased [Unknown]
